FAERS Safety Report 7333686-2 (Version None)
Quarter: 2011Q1

REPORT INFORMATION
  Report Type: 
  Country: None (occurrence: None)
  Receive Date: 20110306
  Receipt Date: 20110207
  Transmission Date: 20110831
  Serious: No
  Sender: FDA-Public Use
  Company Number: US-B.I. PHARMACEUTICALS,INC./RIDGEFIELD-2011-BP-01926BP

PATIENT
  Sex: Female

DRUGS (13)
  1. ASPIRIN [Concomitant]
     Indication: ATRIAL FIBRILLATION
     Dosage: 81 MG
  2. COMBIVENT [Suspect]
     Indication: ASTHMA
  3. ADVAIR DISKUS 100/50 [Concomitant]
     Dosage: 150 MG
  4. CLARINEX [Concomitant]
     Dosage: 150 MG
  5. COMBIVENT [Suspect]
     Indication: CHRONIC OBSTRUCTIVE PULMONARY DISEASE
     Route: 055
     Dates: start: 20011219
  6. KLOR-CON [Concomitant]
  7. VERAPAMIL [Concomitant]
     Indication: HYPERTENSION
     Dosage: 240 MG
  8. ATENOLOL [Concomitant]
  9. HYDROCHLOROTHIAZIDE [Concomitant]
     Dosage: 25 MG
  10. NASONEX [Concomitant]
     Indication: HYPERSENSITIVITY
  11. PRADAXA [Suspect]
     Dosage: 300 NR
     Dates: start: 20110114
  12. LIPITOR [Concomitant]
     Indication: BLOOD CHOLESTEROL INCREASED
  13. AMBIEN [Concomitant]
     Indication: INSOMNIA
     Dosage: 10 MG

REACTIONS (2)
  - FLUSHING [None]
  - EPISTAXIS [None]
